FAERS Safety Report 9472885 (Version 1)
Quarter: 2013Q3

REPORT INFORMATION
  Report Type: Spontaneous
  Country: US (occurrence: US)
  Receive Date: 20130823
  Receipt Date: 20130823
  Transmission Date: 20140515
  Serious: No
  Sender: FDA-Public Use
  Company Number: US-009507513-1308USA010632

PATIENT
  Age: 2 Year
  Sex: Female
  Weight: 20.41 kg

DRUGS (2)
  1. CLARITIN ORAL SOLUTION [Suspect]
     Indication: SEASONAL ALLERGY
     Dosage: 5 MG, QD
     Route: 048
     Dates: start: 201306
  2. CLARITIN ORAL SOLUTION [Suspect]
     Indication: RHINORRHOEA

REACTIONS (2)
  - Overdose [Unknown]
  - No adverse event [Unknown]
